FAERS Safety Report 4708086-1 (Version None)
Quarter: 2005Q3

REPORT INFORMATION
  Report Type: 
  Country: None (occurrence: None)
  Receive Date: 20050707
  Receipt Date: 20050623
  Transmission Date: 20060218
  Serious: Yes (Life-Threatening, Hospitalization)
  Sender: FDA-Public Use
  Company Number: DE-BOEHRINGER INGELHEIM PHARMACEUTICALS, INC.-2005-DE-02408DE

PATIENT
  Sex: Female
  Weight: 63 kg

DRUGS (2)
  1. CATAPRES [Suspect]
     Dosage: 10-20 TABLETS
     Route: 048
  2. ZOPICLON [Suspect]
     Route: 048

REACTIONS (4)
  - BRADYCARDIA [None]
  - DRUG ABUSER [None]
  - SOMNOLENCE [None]
  - SUICIDE ATTEMPT [None]
